FAERS Safety Report 7024906-2 (Version None)
Quarter: 2010Q3

REPORT INFORMATION
  Report Type: 
  Country: None (occurrence: None)
  Receive Date: 20100920
  Receipt Date: 20100520
  Transmission Date: 20110219
  Serious: Yes (Hospitalization, Other)
  Sender: FDA-Public Use
  Company Number: 2010057704

PATIENT
  Age: 49 Year
  Sex: Female

DRUGS (1)
  1. DILANTIN-125 [Suspect]
     Indication: CONVULSION PROPHYLAXIS
     Dosage: 300 MG, 2X/DAY, ORAL
     Route: 048
     Dates: start: 20010101, end: 20010918

REACTIONS (1)
  - STEVENS-JOHNSON SYNDROME [None]
